FAERS Safety Report 21300032 (Version 1)
Quarter: 2022Q3

REPORT INFORMATION
  Report Type: Spontaneous
  Country: CA (occurrence: CA)
  Receive Date: 20220906
  Receipt Date: 20220906
  Transmission Date: 20221027
  Serious: Yes (Other)
  Sender: FDA-Public Use
  Company Number: CA-SA-SAC20220830000222

PATIENT
  Age: 43 Year
  Sex: Female

DRUGS (2)
  1. AUBAGIO [Suspect]
     Active Substance: TERIFLUNOMIDE
     Indication: Multiple sclerosis
     Dosage: UNK
     Route: 065
  2. OCREVUS [Suspect]
     Active Substance: OCRELIZUMAB

REACTIONS (11)
  - Neoplasm malignant [Unknown]
  - Illness [Unknown]
  - Malaise [Unknown]
  - Pain [Unknown]
  - Contusion [Unknown]
  - Ecchymosis [Unknown]
  - Cough [Unknown]
  - COVID-19 [Unknown]
  - Sinusitis [Unknown]
  - Laryngitis [Unknown]
  - Alopecia [Unknown]

NARRATIVE: CASE EVENT DATE: 20220820
